FAERS Safety Report 7723549-2 (Version None)
Quarter: 2011Q3

REPORT INFORMATION
  Report Type: 
  Country: None (occurrence: None)
  Receive Date: 20110901
  Receipt Date: 20110822
  Transmission Date: 20111222
  Serious: Yes (Hospitalization)
  Sender: FDA-Public Use
  Company Number: GB-SANOFI-AVENTIS-2011SA054959

PATIENT
  Sex: Female

DRUGS (15)
  1. FLUOROURACIL [Suspect]
     Route: 065
  2. LEUCOVORIN CALCIUM [Suspect]
     Route: 065
  3. DEXAMETHASONE [Concomitant]
  4. OXALIPLATIN [Suspect]
     Route: 042
     Dates: start: 20100818, end: 20110809
  5. AVASTIN [Suspect]
     Route: 042
     Dates: start: 20100818, end: 20110809
  6. PALONOSETRON [Concomitant]
  7. MAGNESIUM SULFATE [Concomitant]
  8. AMLODIPINE BESYLATE [Concomitant]
  9. ZOFRAN [Concomitant]
  10. CALCIUM GLUCONATE [Concomitant]
  11. METOPROLOL TARTRATE [Concomitant]
  12. LOPERAMIDE HCL [Concomitant]
  13. DIPHENHYDRAMINE HYDROCHLORIDE [Concomitant]
  14. SYNTHROID [Concomitant]
  15. ACETAMINOPHEN [Concomitant]

REACTIONS (1)
  - IDIOPATHIC THROMBOCYTOPENIC PURPURA [None]
